FAERS Safety Report 8985815 (Version 1)
Quarter: 2012Q4

REPORT INFORMATION
  Report Type: 
  Country: GB (occurrence: GB)
  Receive Date: 20121226
  Receipt Date: 20121226
  Transmission Date: 20130627
  Serious: Yes (Disabling)
  Sender: FDA-Public Use
  Company Number: GB-ASTRAZENECA-2012SE93759

PATIENT
  Age: 58 Year
  Sex: Female
  Weight: 95.3 kg

DRUGS (9)
  1. ANASTROZOLE [Suspect]
     Route: 048
     Dates: start: 20121119
  2. AMLODIPINE [Concomitant]
     Dates: start: 20120822
  3. BENDROFLUMETHIAZIDE [Concomitant]
     Dates: start: 20120822
  4. IRBESARTAN [Concomitant]
     Dates: start: 20120822
  5. LETROZOLE [Concomitant]
     Dates: start: 20120823, end: 20121127
  6. SALBUTAMOL [Concomitant]
     Dates: start: 20120822, end: 20120919
  7. SALBUTAMOL [Concomitant]
     Dates: start: 20121114
  8. SIMVASTATIN [Concomitant]
     Dates: start: 20120822
  9. SIMVASTATIN [Concomitant]
     Dates: start: 20121114

REACTIONS (1)
  - Musculoskeletal pain [Recovered/Resolved]
